FAERS Safety Report 4437058-X (Version None)
Quarter: 2004Q3

REPORT INFORMATION
  Report Type: 
  Country: None (occurrence: None)
  Receive Date: 20040830
  Receipt Date: 20040712
  Transmission Date: 20050211
  Serious: Yes (Hospitalization)
  Sender: FDA-Public Use
  Company Number: CH-GLAXOSMITHKLINE-B0339542A

PATIENT
  Age: 78 Year
  Sex: Male

DRUGS (6)
  1. DEROXAT [Suspect]
     Indication: HYPOMANIA
     Dosage: 20MG PER DAY
     Route: 048
     Dates: start: 20000620, end: 20040421
  2. ACETAMINOPHEN [Suspect]
     Indication: PAIN
     Route: 048
     Dates: start: 20040401, end: 20040428
  3. DIPIPERON [Suspect]
     Dosage: 20MG SEE DOSAGE TEXT
     Route: 065
     Dates: start: 20040414, end: 20040415
  4. DIPHENHYDRAMINE HCL [Suspect]
     Dosage: 1TAB AT NIGHT
     Route: 048
     Dates: start: 20040414, end: 20040415
  5. FLUANXOL DEPOT [Suspect]
     Indication: DEMENTIA
     Dosage: 40MG UNKNOWN
     Route: 030
     Dates: start: 20000101, end: 20040620
  6. SPASMO URGENIN [Suspect]
     Dosage: 20MG TWICE PER DAY
     Route: 048
     Dates: start: 20040414, end: 20040421

REACTIONS (2)
  - ANAEMIA [None]
  - NEUTROPENIA [None]
